FAERS Safety Report 8780761 (Version 1)
Quarter: 2012Q4

REPORT INFORMATION
  Report Type: 
  Country: US (occurrence: US)
  Receive Date: 20120913
  Receipt Date: 20120913
  Transmission Date: 20130627
  Serious: No
  Sender: FDA-Public Use
  Company Number: US-VERTEX PHARMACEUTICAL INC.-AE-2012-008291

PATIENT

DRUGS (7)
  1. INCIVEK [Suspect]
     Indication: HEPATITIS C
     Route: 048
     Dates: start: 20120601
  2. PEGASYS [Concomitant]
     Indication: HEPATITIS C
     Route: 058
     Dates: start: 20120601
  3. RIBAVIRIN [Concomitant]
     Indication: HEPATITIS C
     Route: 048
     Dates: start: 20120601
  4. PLAVIX [Concomitant]
     Indication: THROMBOSIS
     Route: 048
  5. ATACAND [Concomitant]
     Indication: HYPERTENSION
     Route: 048
  6. HYDROCHOLOROTHIAZIDE [Concomitant]
     Indication: HYPERTENSION
  7. COREG [Concomitant]
     Indication: HYPERTENSION
     Route: 048

REACTIONS (2)
  - Headache [Not Recovered/Not Resolved]
  - Abdominal discomfort [Not Recovered/Not Resolved]
